FAERS Safety Report 14225404 (Version 1)
Quarter: 2017Q4

REPORT INFORMATION
  Report Type: Spontaneous
  Country: US (occurrence: None)
  Receive Date: 20171122
  Receipt Date: 20171122
  Transmission Date: 20180321
  Serious: No
  Sender: FDA-Public Use
  Company Number: None

PATIENT
  Sex: Female

DRUGS (1)
  1. HARVONI [Suspect]
     Active Substance: LEDIPASVIR\SOFOSBUVIR
     Indication: HEPATITIS C
     Dosage: ONE TABLET DAILY PO
     Route: 048
     Dates: start: 20171014

REACTIONS (3)
  - Dizziness [None]
  - Nausea [None]
  - Oedema peripheral [None]
